FAERS Safety Report 25662319 (Version 6)
Quarter: 2025Q3

REPORT INFORMATION
  Report Type: Spontaneous
  Country: US (occurrence: US)
  Receive Date: 20250810
  Receipt Date: 20250820
  Transmission Date: 20251020
  Serious: Yes (Other)
  Sender: IPSEN BIOPHARMACEUTICALS, INC.
  Company Number: US-IPSEN Group, Research and Development-2025-19536

PATIENT

DRUGS (1)
  1. DYSPORT [Suspect]
     Active Substance: ABOBOTULINUMTOXINA
     Indication: Product used for unknown indication

REACTIONS (13)
  - Diaphragmatic paralysis [Unknown]
  - Muscle spasms [Unknown]
  - Dyspnoea [Unknown]
  - Aphasia [Unknown]
  - Writer^s cramp [Unknown]
  - Impaired work ability [Unknown]
  - Cognitive disorder [Unknown]
  - Abdominal pain [Unknown]
  - Vision blurred [Unknown]
  - Weight decreased [Unknown]
  - Chronic disease [Unknown]
  - Dyspnoea [Unknown]
  - Dysarthria [Unknown]
